FAERS Safety Report 8054039-8 (Version None)
Quarter: 2012Q1

REPORT INFORMATION
  Report Type: 
  Country: None (occurrence: None)
  Receive Date: 20120111
  Receipt Date: 20120105
  Transmission Date: 20120608
  Serious: Yes (Other)
  Sender: FDA-Public Use
  Company Number: 201201012

PATIENT
  Age: 70 Year
  Sex: Male
  Weight: 72.5755 kg

DRUGS (3)
  1. CARDURA [Concomitant]
  2. XIAFLEX [Suspect]
     Indication: DUPUYTREN'S CONTRACTURE
     Dosage: 1 IN 1 D, INTRALESIONAL
     Route: 026
     Dates: start: 20110101, end: 20110101
  3. LIPITOR [Concomitant]

REACTIONS (8)
  - CARPAL TUNNEL SYNDROME [None]
  - NEURITIS [None]
  - MUSCLE RUPTURE [None]
  - PAIN IN EXTREMITY [None]
  - CUBITAL TUNNEL SYNDROME [None]
  - NERVE INJURY [None]
  - HYPOAESTHESIA [None]
  - TENDON DISORDER [None]
